FAERS Safety Report 20479530 (Version 1)
Quarter: 2022Q1

REPORT INFORMATION
  Report Type: Spontaneous
  Country: OM (occurrence: OM)
  Receive Date: 20220216
  Receipt Date: 20220216
  Transmission Date: 20220423
  Serious: Yes (Other)
  Sender: FDA-Public Use
  Company Number: OM-Accord-254057

PATIENT
  Age: 3 Year
  Sex: Female

DRUGS (3)
  1. ETOPOSIDE [Suspect]
     Active Substance: ETOPOSIDE
     Indication: Congenital retinoblastoma
     Dates: start: 201411, end: 201504
  2. CARBOPLATIN [Suspect]
     Active Substance: CARBOPLATIN
     Indication: Congenital retinoblastoma
     Dates: start: 201411, end: 201504
  3. VINCRISTINE [Suspect]
     Active Substance: VINCRISTINE
     Indication: Congenital retinoblastoma
     Dates: start: 201411, end: 201504

REACTIONS (2)
  - Chronic myeloid leukaemia [Recovered/Resolved]
  - Treatment failure [Unknown]
